FAERS Safety Report 9653310 (Version 1)
Quarter: 2013Q4

REPORT INFORMATION
  Report Type: Spontaneous
  Country: IT (occurrence: IT)
  Receive Date: 20131029
  Receipt Date: 20131029
  Transmission Date: 20140711
  Serious: Yes (Other)
  Sender: FDA-Public Use
  Company Number: IT-TEVA-439957ISR

PATIENT
  Age: 76 Year
  Sex: Male

DRUGS (6)
  1. AZILECT [Suspect]
     Indication: EXTRAPYRAMIDAL DISORDER
     Dosage: 1 MILLIGRAM DAILY;
     Route: 048
     Dates: start: 20100215
  2. CREON [Concomitant]
     Route: 048
  3. URODIE [Concomitant]
     Indication: BENIGN PROSTATIC HYPERPLASIA
     Dosage: 10 MILLIGRAM DAILY;
     Route: 048
  4. NORMIX [Concomitant]
     Indication: DIVERTICULUM
  5. MYLICON [Concomitant]
     Indication: DIVERTICULUM
  6. NEXIUM [Concomitant]
     Indication: PROPHYLAXIS

REACTIONS (2)
  - Pancreatic carcinoma [Unknown]
  - Amylase decreased [Not Recovered/Not Resolved]
